FAERS Safety Report 6526702-9 (Version None)
Quarter: 2010Q1

REPORT INFORMATION
  Report Type: 
  Country: None (occurrence: None)
  Receive Date: 20100104
  Receipt Date: 20100104
  Transmission Date: 20100710
  Serious: Yes (Disabling, Other)
  Sender: FDA-Public Use
  Company Number: None

PATIENT
  Age: 79 Year
  Sex: Female
  Weight: 90.7194 kg

DRUGS (1)
  1. LEVOTHROID [Suspect]
     Indication: HYPOTHYROIDISM
     Dosage: 1 1/2 TAB DAILY ORAL
     Route: 048
     Dates: start: 20090901

REACTIONS (5)
  - DRUG HYPERSENSITIVITY [None]
  - DRUG INEFFECTIVE [None]
  - HYPERAESTHESIA [None]
  - INFECTION [None]
  - SCAR [None]
